FAERS Safety Report 6966945-3 (Version None)
Quarter: 2010Q3

REPORT INFORMATION
  Report Type: 
  Country: None (occurrence: None)
  Receive Date: 20100906
  Receipt Date: 20100831
  Transmission Date: 20110219
  Serious: Yes (Hospitalization)
  Sender: FDA-Public Use
  Company Number: FR-BRISTOL-MYERS SQUIBB COMPANY-15268758

PATIENT
  Age: 40 Year
  Sex: Male

DRUGS (2)
  1. ABILIFY [Suspect]
     Indication: SCHIZOPHRENIA
     Dosage: DRUG DISCONTINUED ON EARLY AUGUST
     Dates: start: 20100201, end: 20100801
  2. HALDOL [Suspect]
     Dosage: 1 INJECTABLE VIAL

REACTIONS (1)
  - ABNORMAL BEHAVIOUR [None]
